FAERS Safety Report 5048484-2 (Version None)
Quarter: 2006Q3

REPORT INFORMATION
  Report Type: 
  Country: None (occurrence: None)
  Receive Date: 20060705
  Receipt Date: 20060621
  Transmission Date: 20061208
  Serious: Yes (Hospitalization)
  Sender: FDA-Public Use
  Company Number: 2006BI001264

PATIENT
  Age: 63 Year
  Sex: Male
  Weight: 75 kg

DRUGS (1)
  1. AVONEX [Suspect]
     Indication: MULTIPLE SCLEROSIS
     Dosage: 30 UG;QW;
     Dates: start: 20050901

REACTIONS (4)
  - ANAL FISTULA [None]
  - HEADACHE [None]
  - PERIANAL ABSCESS [None]
  - SURGICAL PROCEDURE REPEATED [None]
